FAERS Safety Report 4810456-8 (Version None)
Quarter: 2005Q4

REPORT INFORMATION
  Report Type: 
  Country: None (occurrence: None)
  Receive Date: 20051025
  Receipt Date: 20051025
  Transmission Date: 20060501
  Serious: Yes (Hospitalization)
  Sender: FDA-Public Use
  Company Number: None

PATIENT
  Age: 66 Year
  Sex: Male

DRUGS (14)
  1. LISINOPRIL [Suspect]
     Dosage: 20MG PO QD
     Route: 048
     Dates: start: 20040901, end: 20050801
  2. CHLORTHALIDONE [Suspect]
     Dosage: 50MG PO QD
     Route: 048
  3. TYLENOL (CAPLET) [Concomitant]
  4. ALLOPURINOL [Concomitant]
  5. ASPIRIN [Concomitant]
  6. BUPROPION HCL [Concomitant]
  7. CHLORPHENIRAMINE MALEATE [Concomitant]
  8. CHLORTHALIDONE [Concomitant]
  9. FLUNISOLIDE [Concomitant]
  10. MAGNESIUM OXIDE [Concomitant]
  11. METHYLCELLULOSE [Concomitant]
  12. RANITIDINE [Concomitant]
  13. TERAZOSIN HCL [Concomitant]
  14. TRAZODONE HCL [Concomitant]

REACTIONS (3)
  - BLOOD CREATINE INCREASED [None]
  - ELECTROCARDIOGRAM T WAVE PEAKED [None]
  - HYPERKALAEMIA [None]
